FAERS Safety Report 18859202 (Version 1)
Quarter: 2021Q1

REPORT INFORMATION
  Report Type: Spontaneous
  Country: US (occurrence: US)
  Receive Date: 20210207
  Receipt Date: 20210207
  Transmission Date: 20210420
  Serious: Yes (Other)
  Sender: FDA-Public Use
  Company Number: None

PATIENT
  Age: 50 Year
  Sex: Male
  Weight: 164.25 kg

DRUGS (7)
  1. LISINOPRIL. [Concomitant]
     Active Substance: LISINOPRIL
  2. NORCO 10?325 [Concomitant]
  3. HYDROCODON?APAP?10?325 [Suspect]
     Active Substance: ACETAMINOPHEN\HYDROCODONE BITARTRATE
     Indication: SPINAL STENOSIS
     Dosage: ?          QUANTITY:1 TABLET(S);?
     Route: 048
     Dates: start: 20210201, end: 20210207
  4. GABAPITTEN [Concomitant]
  5. ATENOL [Concomitant]
     Active Substance: ATENOLOL
  6. PRILOSEC OTC [Concomitant]
     Active Substance: OMEPRAZOLE MAGNESIUM
  7. IBUPROFEN. [Concomitant]
     Active Substance: IBUPROFEN

REACTIONS (7)
  - Product substitution issue [None]
  - Urticaria [None]
  - Rash [None]
  - Flushing [None]
  - Product formulation issue [None]
  - Erythema [None]
  - Inadequate analgesia [None]

NARRATIVE: CASE EVENT DATE: 20210201
